FAERS Safety Report 7033173-5 (Version None)
Quarter: 2010Q4

REPORT INFORMATION
  Report Type: 
  Country: None (occurrence: None)
  Receive Date: 20101007
  Receipt Date: 20100922
  Transmission Date: 20110411
  Serious: Yes (Hospitalization, Other)
  Sender: FDA-Public Use
  Company Number: PHHY2010PL63266

PATIENT
  Sex: Female
  Weight: 68 kg

DRUGS (4)
  1. MYFORTIC [Suspect]
     Indication: RENAL TRANSPLANT
     Dosage: 740 MG
     Route: 048
     Dates: start: 20100620
  2. PROGRAF [Concomitant]
     Indication: RENAL TRANSPLANT
     Dosage: 6 MG
     Dates: start: 20100620
  3. ENCORTON [Concomitant]
     Indication: RENAL TRANSPLANT
     Dosage: 15 MG
     Dates: start: 20100804
  4. BISEPTOL [Concomitant]
     Indication: RENAL TRANSPLANT
     Dosage: 480 MG
     Dates: start: 20100620, end: 20100922

REACTIONS (8)
  - ATRIAL FIBRILLATION [None]
  - CARDIOMEGALY [None]
  - CARDIOVASCULAR DISORDER [None]
  - CHEST X-RAY ABNORMAL [None]
  - LUNG NEOPLASM [None]
  - PLEURAL EFFUSION [None]
  - PNEUMONIA [None]
  - PYREXIA [None]
